FAERS Safety Report 18414251 (Version 2)
Quarter: 2020Q4

REPORT INFORMATION
  Report Type: Spontaneous
  Country: PT (occurrence: PT)
  Receive Date: 20201022
  Receipt Date: 20201109
  Transmission Date: 20210114
  Serious: Yes (Other)
  Sender: FDA-Public Use
  Company Number: PT-TEVA-2020-PT-1840279

PATIENT
  Age: 44 Year
  Sex: Female

DRUGS (2)
  1. LARGACTIL [Suspect]
     Active Substance: CHLORPROMAZINE
     Indication: AGITATION
     Dosage: 3ID, UNIT DOSE : 75 MG
     Route: 048
     Dates: start: 20200914, end: 20200923
  2. RISPERIDONE. [Suspect]
     Active Substance: RISPERIDONE
     Indication: PSYCHOTIC DISORDER
     Dosage: 1ID, 10 MG
     Route: 048
     Dates: start: 20200909, end: 20200923

REACTIONS (1)
  - Hepatotoxicity [Recovered/Resolved]

NARRATIVE: CASE EVENT DATE: 20200923
